FAERS Safety Report 19034032 (Version 5)
Quarter: 2021Q3

REPORT INFORMATION
  Report Type: Spontaneous
  Country: US (occurrence: US)
  Receive Date: 20210319
  Receipt Date: 20210712
  Transmission Date: 20211014
  Serious: Yes (Other)
  Sender: FDA-Public Use
  Company Number: US-PFIZER INC-2021284715

PATIENT
  Age: 66 Year
  Sex: Female
  Weight: 113.38 kg

DRUGS (14)
  1. ESOMEPRAZOLE MAGNESIUM. [Concomitant]
     Active Substance: ESOMEPRAZOLE MAGNESIUM
  2. GLIPIZIDE. [Concomitant]
     Active Substance: GLIPIZIDE
  3. ASPIRIN CARDIO [Concomitant]
     Active Substance: ASPIRIN
  4. CIMETIDINE [Concomitant]
     Active Substance: CIMETIDINE
  5. FASLODEX [Concomitant]
     Active Substance: FULVESTRANT
  6. ZOMETA [Concomitant]
     Active Substance: ZOLEDRONIC ACID
  7. IBUPROFEN. [Concomitant]
     Active Substance: IBUPROFEN
  8. LISINOPRIL. [Concomitant]
     Active Substance: LISINOPRIL
  9. HYDROMORPHONE HCL [Concomitant]
     Active Substance: HYDROMORPHONE HYDROCHLORIDE
  10. IBRANCE [Suspect]
     Active Substance: PALBOCICLIB
     Indication: BREAST CANCER METASTATIC
     Dosage: 100 MG, CYCLIC (1 DAILY FOR 21 DAYS)
     Route: 048
     Dates: start: 20201224
  11. IBRANCE [Suspect]
     Active Substance: PALBOCICLIB
     Indication: AGRANULOCYTOSIS
  12. ALEVE [Concomitant]
     Active Substance: NAPROXEN SODIUM
  13. ATORVASTATIN CALCIUM. [Concomitant]
     Active Substance: ATORVASTATIN CALCIUM
  14. NEXIUM 24HR [Concomitant]
     Active Substance: ESOMEPRAZOLE MAGNESIUM

REACTIONS (6)
  - Nail bed infection [Unknown]
  - Rash [Unknown]
  - Gait disturbance [Unknown]
  - Pain [Unknown]
  - Eczema [Unknown]
  - Fall [Unknown]

NARRATIVE: CASE EVENT DATE: 202101
